FAERS Safety Report 16828566 (Version 1)
Quarter: 2019Q3

REPORT INFORMATION
  Report Type: Spontaneous
  Country: SE (occurrence: SE)
  Receive Date: 20190919
  Receipt Date: 20190919
  Transmission Date: 20191005
  Serious: Yes (Other)
  Sender: FDA-Public Use
  Company Number: SE-VERTEX PHARMACEUTICALS-2019-008804

PATIENT
  Age: 9 Year
  Sex: Female

DRUGS (13)
  1. MOMETASONE [Concomitant]
     Active Substance: MOMETASONE
     Dates: start: 20180326
  2. ORKAMBI [Suspect]
     Active Substance: IVACAFTOR\LUMACAFTOR
     Indication: CYSTIC FIBROSIS
     Dosage: 100/125 MG 2X2
     Route: 048
     Dates: start: 20181128, end: 20190731
  3. ADDEX-NATRIUMKLORID [Concomitant]
     Dates: start: 20130528
  4. BISOLVON [Concomitant]
     Active Substance: BROMHEXINE HYDROCHLORIDE
     Dates: start: 20130528
  5. PERTZYE [Concomitant]
     Active Substance: PANCRELIPASE AMYLASE\PANCRELIPASE LIPASE\PANCRELIPASE PROTEASE
     Dates: start: 20151110
  6. MOVICOL JUNIOR [Concomitant]
     Dates: start: 20180326
  7. MOLLIPECT [Concomitant]
     Active Substance: BROMHEXINE
     Dates: start: 20190822
  8. ACETYLCYSTEINE. [Concomitant]
     Active Substance: ACETYLCYSTEINE
     Dates: start: 20160407
  9. OMEPRAZOLE. [Concomitant]
     Active Substance: OMEPRAZOLE
     Dates: start: 20180607
  10. WATER. [Concomitant]
     Active Substance: WATER
     Dates: start: 20190805
  11. PULMOZYME [Concomitant]
     Active Substance: DORNASE ALFA
     Dates: start: 20181107
  12. AIROMIR [Concomitant]
     Active Substance: ALBUTEROL SULFATE
     Dates: start: 20170725
  13. PRECOSA [Concomitant]
     Active Substance: SACCHAROMYCES CEREVISIAE
     Dates: start: 20190103

REACTIONS (1)
  - Anxiety [Recovered/Resolved]

NARRATIVE: CASE EVENT DATE: 20190510
